FAERS Safety Report 8500302-3 (Version None)
Quarter: 2012Q3

REPORT INFORMATION
  Report Type: 
  Country: None (occurrence: None)
  Receive Date: 20120710
  Receipt Date: 20120628
  Transmission Date: 20120928
  Serious: Yes (Other)
  Sender: FDA-Public Use
  Company Number: JP-GENZYME-FABR-1002604

PATIENT
  Weight: 50 kg

DRUGS (1)
  1. FABRAZYME [Suspect]
     Indication: FABRY'S DISEASE
     Dosage: UNK UNK, UNK
     Route: 042

REACTIONS (2)
  - CEREBRAL INFARCTION [None]
  - CEREBELLAR INFARCTION [None]
